FAERS Safety Report 19901181 (Version 1)
Quarter: 2021Q3

REPORT INFORMATION
  Report Type: Spontaneous
  Country: FR (occurrence: FR)
  Receive Date: 20210930
  Receipt Date: 20210930
  Transmission Date: 20211014
  Serious: Yes (Other)
  Sender: FDA-Public Use
  Company Number: FR-PFIZER INC-202101238372

PATIENT
  Age: 49 Year
  Sex: Female
  Weight: 120 kg

DRUGS (5)
  1. COVERAM [Concomitant]
     Active Substance: AMLODIPINE\PERINDOPRIL
     Dosage: UNK
  2. TIENAM [Suspect]
     Active Substance: CILASTATIN SODIUM\IMIPENEM
     Indication: POSTOPERATIVE ABSCESS
     Dosage: 1 G, 3X/DAY (FREQ: 8 H)
     Route: 041
     Dates: start: 20210903, end: 20210913
  3. FLUDEX [INDAPAMIDE] [Concomitant]
     Active Substance: INDAPAMIDE
     Dosage: UNK
  4. DALACINE [Suspect]
     Active Substance: CLINDAMYCIN
     Indication: POSTOPERATIVE ABSCESS
     Dosage: 300 MG, 3X/DAY (EVERY 8 HOURS)
     Route: 048
     Dates: start: 20210903, end: 20210913
  5. ENOXAPARIN [ENOXAPARIN SODIUM] [Concomitant]
     Active Substance: ENOXAPARIN SODIUM
     Dosage: UNK

REACTIONS (1)
  - Rash [Recovering/Resolving]

NARRATIVE: CASE EVENT DATE: 20210912
